FAERS Safety Report 7171100-0 (Version None)
Quarter: 2010Q4

REPORT INFORMATION
  Report Type: 
  Country: None (occurrence: None)
  Receive Date: 20101123
  Receipt Date: 20100824
  Transmission Date: 20110411
  Serious: No
  Sender: FDA-Public Use
  Company Number: 017650

PATIENT
  Sex: Female

DRUGS (3)
  1. CIMZIA [Suspect]
     Dosage: 9200 MG 1X/2 WEEKS SUBCUTANEOUS)
     Route: 058
  2. ALLERGY MEDICATION [Concomitant]
  3. ASACOL [Concomitant]

REACTIONS (1)
  - INJECTION SITE HAEMORRHAGE [None]
